FAERS Safety Report 5025482-6 (Version None)
Quarter: 2006Q2

REPORT INFORMATION
  Report Type: 
  Country: None (occurrence: None)
  Receive Date: 20060608
  Receipt Date: 20060530
  Transmission Date: 20061013
  Serious: Yes (Hospitalization)
  Sender: FDA-Public Use
  Company Number: 2006BI007887

PATIENT
  Age: 61 Year
  Sex: Female
  Weight: 65.318 kg

DRUGS (1)
  1. AVONEX [Suspect]
     Indication: MULTIPLE SCLEROSIS
     Dosage: 0.5 MG;
     Dates: start: 20060421

REACTIONS (1)
  - CELLULITIS [None]
